FAERS Safety Report 7140368-9 (Version None)
Quarter: 2010Q4

REPORT INFORMATION
  Report Type: 
  Country: None (occurrence: None)
  Receive Date: 20101207
  Receipt Date: 20101202
  Transmission Date: 20110411
  Serious: Yes (Hospitalization)
  Sender: FDA-Public Use
  Company Number: US-BIOGENIDEC-2010BI041191

PATIENT
  Age: 53 Year
  Sex: Female

DRUGS (4)
  1. TYSABRI [Suspect]
     Indication: MULTIPLE SCLEROSIS
     Route: 042
     Dates: start: 20100420, end: 20100923
  2. TYSABRI [Suspect]
     Route: 042
     Dates: start: 20030201, end: 20050201
  3. STEROIDS (NOS) [Concomitant]
  4. ANTIBIOTICS (NOS) [Concomitant]
     Indication: CYSTITIS
     Dates: start: 20100901

REACTIONS (5)
  - BLADDER SPASM [None]
  - CANDIDIASIS [None]
  - CYSTITIS [None]
  - EMOTIONAL DISORDER [None]
  - FATIGUE [None]
